FAERS Safety Report 9511714 (Version 1)
Quarter: 2013Q1

REPORT INFORMATION
  Report Type: Spontaneous
  Country: US (occurrence: None)
  Receive Date: 20130305
  Receipt Date: 20130305
  Transmission Date: 20140127
  Serious: Yes (Other)
  Sender: FDA-Public Use
  Company Number: 163-21880-12103463

PATIENT
  Age: 62 Year
  Sex: Female
  Weight: 88.45 kg

DRUGS (12)
  1. REVLIMID [Suspect]
     Indication: PLASMA CELL MYELOMA
     Dosage: 25 MG, 21 IN 28 D, PO
     Route: 048
     Dates: start: 20120716
  2. VELCADE [Suspect]
     Indication: PRODUCT USED FOR UNKNOWN INDICATION
  3. CALCIUM 600 PLUS VIT D (CALCIUM WITH VITAMIN D (UNKNOWN) [Concomitant]
  4. DEXAMETHASONE (DEXAMETHASONE) (UNKNOWN) [Concomitant]
  5. FISH OIL (FISH OIL) (UNKNOWN) [Concomitant]
  6. LIPITOR (ATORVASTATIN) (TABLETS) [Concomitant]
  7. LISINOPRIL (LISINOPRIL) (UNKNOWN) [Concomitant]
  8. MULTIVITAMINS (MULTIVITAMINS) (TABLETS) [Concomitant]
  9. PROCRIT [Concomitant]
  10. ZYRTEC (CETIRIZINE HYDROCHLORIDE) (TABLETS) [Concomitant]
  11. FOLIC ACID (FOLIC ACID) (CAPSULES) [Concomitant]
  12. VITAMIN B-6 (PYRIDOXINE HYDROCHLORIDE) (TABLETS) [Concomitant]

REACTIONS (4)
  - Pain [None]
  - Hypoaesthesia [None]
  - Vertigo [None]
  - Neuropathy peripheral [None]
